FAERS Safety Report 16853010 (Version 1)
Quarter: 2019Q3

REPORT INFORMATION
  Report Type: Spontaneous
  Country: UA (occurrence: UA)
  Receive Date: 20190925
  Receipt Date: 20190925
  Transmission Date: 20191005
  Serious: Yes (Hospitalization, Other)
  Sender: FDA-Public Use
  Company Number: UA-BAUSCH-BL-2019-054726

PATIENT
  Age: 52 Year
  Sex: Male

DRUGS (8)
  1. HEPAVAL [Concomitant]
     Indication: PRODUCT USED FOR UNKNOWN INDICATION
     Dates: start: 20190823
  2. HEPTRAL [Concomitant]
     Active Substance: ADEMETIONINE
     Indication: PRODUCT USED FOR UNKNOWN INDICATION
     Dates: start: 20190823
  3. PENTASA [Concomitant]
     Active Substance: MESALAMINE
     Indication: PRODUCT USED FOR UNKNOWN INDICATION
     Dates: start: 20190823
  4. LEVOFLOXACIN. [Concomitant]
     Active Substance: LEVOFLOXACIN
     Indication: PRODUCT USED FOR UNKNOWN INDICATION
     Dates: start: 20190823
  5. BUDENOFALK [Concomitant]
     Active Substance: BUDESONIDE
     Indication: PRODUCT USED FOR UNKNOWN INDICATION
     Dates: start: 20190823
  6. ALFA NORMIX [Suspect]
     Active Substance: RIFAXIMIN
     Indication: COLITIS ULCERATIVE
     Route: 048
     Dates: start: 20190823, end: 20190906
  7. URSOLIN [Concomitant]
     Indication: PRODUCT USED FOR UNKNOWN INDICATION
     Dates: start: 20190823
  8. HEPASOL NEO [Concomitant]
     Indication: PRODUCT USED FOR UNKNOWN INDICATION
     Dates: start: 20190823

REACTIONS (2)
  - Tubulointerstitial nephritis [Unknown]
  - Haematuria [Unknown]

NARRATIVE: CASE EVENT DATE: 2019
